FAERS Safety Report 21463038 (Version 1)
Quarter: 2022Q4

REPORT INFORMATION
  Report Type: Spontaneous
  Country: GB (occurrence: GB)
  Receive Date: 20221017
  Receipt Date: 20221017
  Transmission Date: 20230112
  Serious: Yes (Hospitalization)
  Sender: FDA-Public Use
  Company Number: GB-ORG100014127-2022000791

PATIENT
  Age: 76 Year
  Sex: Female

DRUGS (1)
  1. LYSODREN [Suspect]
     Active Substance: MITOTANE
     Indication: Adrenocortical carcinoma
     Dosage: 500 MG TDS
     Route: 048

REACTIONS (4)
  - Sensory loss [Recovered/Resolved]
  - Feeling abnormal [Unknown]
  - Vision blurred [Unknown]
  - Repetitive speech [Unknown]

NARRATIVE: CASE EVENT DATE: 20220101
